FAERS Safety Report 16425616 (Version 1)
Quarter: 2019Q2

REPORT INFORMATION
  Report Type: Spontaneous
  Country: GB (occurrence: GB)
  Receive Date: 20190613
  Receipt Date: 20190613
  Transmission Date: 20190711
  Serious: Yes (Hospitalization, Other)
  Sender: FDA-Public Use
  Company Number: GB-TEVA-2019-GB-1061551

PATIENT
  Age: 65 Year
  Sex: Male

DRUGS (2)
  1. ALLOPURINOL. [Suspect]
     Active Substance: ALLOPURINOL
     Route: 065
  2. AZATHIOPRINE. [Interacting]
     Active Substance: AZATHIOPRINE
     Indication: NEUROSARCOIDOSIS
     Dosage: DOSE WAS PROGRESSIVELY INCREASED, 50 MILLIGRAM
     Route: 048

REACTIONS (8)
  - Drug monitoring procedure incorrectly performed [Unknown]
  - Sepsis [Unknown]
  - Cellulitis [Unknown]
  - Neutropenia [Unknown]
  - Contraindicated product administered [Unknown]
  - Cardiac arrest [Unknown]
  - Anaemia [Unknown]
  - Labelled drug-drug interaction medication error [Unknown]
